FAERS Safety Report 12654111 (Version 1)
Quarter: 2016Q3

REPORT INFORMATION
  Report Type: Spontaneous
  Country: US (occurrence: None)
  Receive Date: 20160815
  Receipt Date: 20160815
  Transmission Date: 20161109
  Serious: Yes (Life-Threatening, Hospitalization, Disabling, Other)
  Sender: FDA-Public Use
  Company Number: None

PATIENT
  Age: 58 Year
  Sex: Male
  Weight: 90.72 kg

DRUGS (1)
  1. KLONOPIN [Suspect]
     Active Substance: CLONAZEPAM
     Indication: ANXIETY
     Dosage: EVERY 12 HOURS
     Route: 048
     Dates: start: 20120301, end: 20130120

REACTIONS (4)
  - Depression [None]
  - Suicide attempt [None]
  - Anxiety [None]
  - Intentional self-injury [None]

NARRATIVE: CASE EVENT DATE: 20130123
